FAERS Safety Report 15768394 (Version 1)
Quarter: 2018Q4

REPORT INFORMATION
  Report Type: Report from Study
  Country: CA (occurrence: CA)
  Receive Date: 20181227
  Receipt Date: 20181227
  Transmission Date: 20190205
  Serious: Yes (Disabling)
  Sender: FDA-Public Use
  Company Number: CA-ACTELION-A-NJ2018-179818

PATIENT
  Age: 37 Year
  Sex: Female

DRUGS (11)
  1. UPTRAVI [Suspect]
     Active Substance: SELEXIPAG
     Dosage: 400 MCG, UNK
     Route: 048
     Dates: start: 20180910
  2. UPTRAVI [Suspect]
     Active Substance: SELEXIPAG
     Dosage: 1200 MCG, BID
     Route: 048
     Dates: start: 20181112
  3. UPTRAVI [Suspect]
     Active Substance: SELEXIPAG
     Dosage: 1000 MCG, BID
     Route: 048
  4. OPSUMIT [Suspect]
     Active Substance: MACITENTAN
     Indication: PULMONARY ARTERIAL HYPERTENSION
     Dosage: 10 MG, UNK
     Route: 048
     Dates: start: 20180814
  5. VITAMIN D [Concomitant]
     Active Substance: CHOLECALCIFEROL
  6. RISPERIDONE. [Concomitant]
     Active Substance: RISPERIDONE
  7. ADCIRCA [Concomitant]
     Active Substance: TADALAFIL
  8. ASA [Concomitant]
     Active Substance: ASPIRIN
     Dosage: 81 MG, UNK
  9. UPTRAVI [Suspect]
     Active Substance: SELEXIPAG
     Indication: PULMONARY ARTERIAL HYPERTENSION
     Dosage: 800 MCG, UNK
     Route: 048
     Dates: start: 20180910
  10. METFORMIN [Concomitant]
     Active Substance: METFORMIN HYDROCHLORIDE
  11. UPTRAVI [Suspect]
     Active Substance: SELEXIPAG
     Dosage: 1400 UNK, UNK
     Route: 048

REACTIONS (7)
  - Malaise [Not Recovered/Not Resolved]
  - Headache [Not Recovered/Not Resolved]
  - Pain [Recovering/Resolving]
  - Arthralgia [Recovered/Resolved]
  - Pain in jaw [Recovering/Resolving]
  - Nausea [Not Recovered/Not Resolved]
  - Diarrhoea [Not Recovered/Not Resolved]

NARRATIVE: CASE EVENT DATE: 20180917
